FAERS Safety Report 6581317-1 (Version None)
Quarter: 2010Q1

REPORT INFORMATION
  Report Type: 
  Country: None (occurrence: None)
  Receive Date: 20100215
  Receipt Date: 20091028
  Transmission Date: 20100710
  Serious: Yes (Other)
  Sender: FDA-Public Use
  Company Number: US-JNJFOC-20090801360

PATIENT
  Sex: Male

DRUGS (2)
  1. LEVAQUIN [Suspect]
     Indication: URINARY TRACT INFECTION
     Route: 065
  2. LEVAQUIN [Suspect]
     Route: 065

REACTIONS (3)
  - PLANTAR FASCIITIS [None]
  - TENDON INJURY [None]
  - TENDON RUPTURE [None]
